FAERS Safety Report 6945146-9 (Version None)
Quarter: 2010Q3

REPORT INFORMATION
  Report Type: 
  Country: None (occurrence: None)
  Receive Date: 20100827
  Receipt Date: 20100818
  Transmission Date: 20110219
  Serious: Yes (Other)
  Sender: FDA-Public Use
  Company Number: US-PFIZER INC-2010075755

PATIENT
  Sex: Female
  Weight: 130.16 kg

DRUGS (5)
  1. CHANTIX [Suspect]
     Indication: SMOKING CESSATION THERAPY
     Dosage: 0.5 MG, 1X/DAY
     Route: 048
     Dates: start: 20100101
  2. CHANTIX [Suspect]
     Dosage: 1 MG, UNK
     Route: 048
     Dates: start: 20100101, end: 20100811
  3. ALBUTEROL [Concomitant]
     Indication: ASTHMA
     Dosage: UNK, AS NEEDED
     Route: 055
  4. PHENOBARBITAL [Concomitant]
     Indication: EPILEPSY
     Dosage: 250 MG, 1X/DAY
     Route: 048
  5. DEPAKOTE [Concomitant]
     Indication: EPILEPSY
     Dosage: 3000 MG, UNK
     Route: 048

REACTIONS (3)
  - CONVULSION [None]
  - DYSPNOEA [None]
  - FALL [None]
